FAERS Safety Report 5122158-1 (Version None)
Quarter: 2006Q4

REPORT INFORMATION
  Report Type: 
  Country: None (occurrence: None)
  Receive Date: 20061004
  Receipt Date: 20061004
  Transmission Date: 20070319
  Serious: Yes (Hospitalization)
  Sender: FDA-Public Use
  Company Number: None

PATIENT
  Age: 63 Year
  Sex: Male

DRUGS (3)
  1. SIMVASTATIN [Suspect]
     Indication: HYPERLIPIDAEMIA
     Dosage: 80MG PO QHS
     Route: 048
  2. SIMVASTATIN [Suspect]
     Indication: HYPERTRIGLYCERIDAEMIA
     Dosage: 80MG PO QHS
     Route: 048
  3. GEMFIBROZIL [Suspect]
     Indication: HYPERTRIGLYCERIDAEMIA
     Dosage: 600MG PO BID
     Route: 048

REACTIONS (3)
  - BLOOD CREATININE INCREASED [None]
  - BLOOD TRIGLYCERIDES INCREASED [None]
  - RHABDOMYOLYSIS [None]
